APPROVED DRUG PRODUCT: TRETINOIN
Active Ingredient: TRETINOIN
Strength: 0.025%
Dosage Form/Route: CREAM;TOPICAL
Application: A215713 | Product #001 | TE Code: AB
Applicant: SUN PHARMA CANADA INC
Approved: Jan 5, 2023 | RLD: No | RS: No | Type: RX